FAERS Safety Report 4907146-X (Version None)
Quarter: 2006Q1

REPORT INFORMATION
  Report Type: 
  Country: None (occurrence: None)
  Receive Date: 20060206
  Receipt Date: 20051202
  Transmission Date: 20060701
  Serious: Yes (Death, Hospitalization)
  Sender: FDA-Public Use
  Company Number: JPKYO-S-20060003 - V001

PATIENT
  Age: 67 Year
  Sex: Male

DRUGS (10)
  1. NAVELBINE (VINORELBINE)SOLUTION FOR INJECTION [Suspect]
     Indication: NON-SMALL CELL LUNG CANCER STAGE IIIB
     Route: 042
     Dates: start: 20050927, end: 20051004
  2. NAVELBINE - VINORELBINE - SOLUTION FOR INJECTION [Suspect]
     Indication: NON-SMALL CELL LUNG CANCER STAGE IIIB
     Route: 042
     Dates: start: 20050927, end: 20051004
  3. GEMZAR [Suspect]
     Indication: NON-SMALL CELL LUNG CANCER
     Route: 042
     Dates: start: 20050927, end: 20051004
  4. UNIPHYL [Concomitant]
  5. CODEINE PHOSPHATE [Concomitant]
  6. PREDONINE [Concomitant]
  7. ALFAROL [Concomitant]
  8. BUFFERIN [Concomitant]
  9. MUCOSAL [Concomitant]
  10. TAKEPRON [Concomitant]

REACTIONS (4)
  - ADHESION [None]
  - CARDIAC TAMPONADE [None]
  - PANCREATITIS ACUTE [None]
  - PERICARDIAL EFFUSION MALIGNANT [None]
